FAERS Safety Report 14517614 (Version 1)
Quarter: 2018Q1

REPORT INFORMATION
  Report Type: Spontaneous
  Country: US (occurrence: US)
  Receive Date: 20180212
  Receipt Date: 20180212
  Transmission Date: 20180509
  Serious: No
  Sender: FDA-Public Use
  Company Number: US-PFIZER INC-2018051753

PATIENT
  Age: 5 Year
  Sex: Male
  Weight: 23.58 kg

DRUGS (1)
  1. QUILLIVANT XR [Suspect]
     Active Substance: METHYLPHENIDATE HYDROCHLORIDE
     Indication: ATTENTION DEFICIT/HYPERACTIVITY DISORDER
     Dosage: 10 ML, DAILY (7MLS IN THE MORNING AND 3MLS AT NOON)

REACTIONS (5)
  - Hostility [Unknown]
  - Rash [Unknown]
  - Drug administered to patient of inappropriate age [Unknown]
  - Affect lability [Unknown]
  - Crying [Unknown]
